FAERS Safety Report 6648206-5 (Version None)
Quarter: 2010Q1

REPORT INFORMATION
  Report Type: 
  Country: None (occurrence: None)
  Receive Date: 20100324
  Receipt Date: 20100312
  Transmission Date: 20100710
  Serious: Yes (Hospitalization)
  Sender: FDA-Public Use
  Company Number: US-ALEXION-A201000259

PATIENT

DRUGS (9)
  1. SOLIRIS [Suspect]
     Indication: PAROXYSMAL NOCTURNAL HAEMOGLOBINURIA
     Dosage: UNK
     Route: 042
  2. NEXIUM [Concomitant]
     Dosage: 40 MG, BID
     Route: 048
  3. K-DUR [Concomitant]
     Dosage: 20 MEQ, QD
     Route: 048
  4. COLACE [Concomitant]
     Dosage: 100 MG, BID
     Route: 048
  5. LASIX [Concomitant]
     Dosage: 40 MG, QD
  6. SYNTHROID [Concomitant]
     Dosage: 25 MEQ, QD
     Route: 048
  7. LIPITOR [Concomitant]
     Dosage: 40 MG, QD
     Route: 048
  8. GABAPENTIN [Concomitant]
     Dosage: 300 MG, TID
     Route: 048
  9. FOLIC ACID [Concomitant]
     Dosage: 1 MG, QD
     Route: 048

REACTIONS (1)
  - CARDIAC FAILURE CONGESTIVE [None]
